FAERS Safety Report 4601505-0 (Version None)
Quarter: 2005Q1

REPORT INFORMATION
  Report Type: 
  Country: None (occurrence: None)
  Receive Date: 20050307
  Receipt Date: 20050307
  Transmission Date: 20050727
  Serious: Yes (Hospitalization)
  Sender: FDA-Public Use
  Company Number: None

PATIENT
  Sex: Male
  Weight: 89.5 kg

DRUGS (1)
  1. PHENYTOIN [Suspect]
     Dosage: 200 MG Q AM 100 MG QHS

REACTIONS (2)
  - LETHARGY [None]
  - TREATMENT NONCOMPLIANCE [None]
